FAERS Safety Report 19753732 (Version 3)
Quarter: 2021Q3

REPORT INFORMATION
  Report Type: Spontaneous
  Country: JP (occurrence: JP)
  Receive Date: 20210827
  Receipt Date: 20210924
  Transmission Date: 20211014
  Serious: Yes (Hospitalization, Other)
  Sender: FDA-Public Use
  Company Number: JP-SA-2021SA280135

PATIENT
  Age: 47 Year
  Sex: Male

DRUGS (2)
  1. DUPIXENT [Suspect]
     Active Substance: DUPILUMAB
     Indication: NASAL POLYPS
     Dosage: 300 (UNIT, UNSPECIFIED), QOW
     Route: 058
     Dates: start: 20210521, end: 20210820
  2. QVAR [Concomitant]
     Active Substance: BECLOMETHASONE DIPROPIONATE
     Indication: PRODUCT USED FOR UNKNOWN INDICATION
     Dosage: 100 (UNIT, UNSPECIFIED), BID
     Route: 065
     Dates: start: 201707

REACTIONS (2)
  - Dyspnoea exertional [Unknown]
  - Hypereosinophilic syndrome [Unknown]

NARRATIVE: CASE EVENT DATE: 202107
